FAERS Safety Report 6747017-X (Version None)
Quarter: 2010Q2

REPORT INFORMATION
  Report Type: 
  Country: None (occurrence: None)
  Receive Date: 20100528
  Receipt Date: 20100517
  Transmission Date: 20101027
  Serious: Yes (Hospitalization, Other)
  Sender: FDA-Public Use
  Company Number: PHHY2010US31486

PATIENT
  Age: 39 Year
  Sex: Female

DRUGS (4)
  1. IMATINIB [Suspect]
     Indication: CHRONIC MYELOID LEUKAEMIA
     Dosage: 800 MG/DAY
  2. NILOTINIB [Suspect]
     Indication: CHRONIC MYELOID LEUKAEMIA
     Dosage: 600 MG, BID
  3. TIPIFARNIB [Concomitant]
     Indication: CHRONIC MYELOID LEUKAEMIA
  4. DASATINIB [Concomitant]
     Dosage: 70 MG, BID

REACTIONS (4)
  - BLAST CRISIS IN MYELOGENOUS LEUKAEMIA [None]
  - CHRONIC MYELOID LEUKAEMIA TRANSFORMATION [None]
  - DRUG INEFFECTIVE [None]
  - LEUKAEMIA BASOPHILIC [None]
